FAERS Safety Report 23094088 (Version 4)
Quarter: 2025Q4

REPORT INFORMATION
  Report Type: Report from Study
  Country: US (occurrence: US)
  Receive Date: 20231023
  Receipt Date: 20251025
  Transmission Date: 20260117
  Serious: Yes (Other)
  Sender: ABBVIE
  Company Number: US-ABBVIE-5456309

PATIENT
  Age: 50 Year
  Sex: Female
  Weight: 45 kg

DRUGS (3)
  1. RINVOQ [Suspect]
     Active Substance: UPADACITINIB
     Indication: Rheumatoid arthritis
     Route: 048
     Dates: start: 202211, end: 20231011
  2. RINVOQ [Suspect]
     Active Substance: UPADACITINIB
     Indication: Rheumatoid arthritis
     Route: 048
     Dates: start: 2023, end: 2025
  3. RINVOQ [Suspect]
     Active Substance: UPADACITINIB
     Indication: Rheumatoid arthritis
     Route: 048
     Dates: start: 202510

REACTIONS (6)
  - Knee arthroplasty [Recovering/Resolving]
  - Alopecia [Unknown]
  - Colostomy [Unknown]
  - Rheumatoid arthritis [Unknown]
  - Arthropathy [Recovering/Resolving]
  - Immune thrombocytopenia [Unknown]

NARRATIVE: CASE EVENT DATE: 20230301
